FAERS Safety Report 8992051 (Version 1)
Quarter: 2012Q4

REPORT INFORMATION
  Report Type: 
  Country: NL (occurrence: NL)
  Receive Date: 20121231
  Receipt Date: 20121231
  Transmission Date: 20130627
  Serious: Yes (Hospitalization, Other)
  Sender: FDA-Public Use
  Company Number: NL-AMGEN-NLDSP2012068718

PATIENT
  Age: 39 Year
  Sex: Male

DRUGS (2)
  1. ENBREL [Suspect]
     Indication: ANKYLOSING SPONDYLITIS
     Dosage: 50 mg, weekly
     Dates: start: 20120918
  2. FENTANYL [Interacting]
     Dosage: UNK

REACTIONS (6)
  - Pyrexia [Recovering/Resolving]
  - Delirium [Recovering/Resolving]
  - Fatigue [Not Recovered/Not Resolved]
  - Feeling abnormal [Recovering/Resolving]
  - Drug interaction [Recovering/Resolving]
  - Parosmia [Recovering/Resolving]
